FAERS Safety Report 6376765-9 (Version None)
Quarter: 2009Q3

REPORT INFORMATION
  Report Type: 
  Country: None (occurrence: None)
  Receive Date: 20090924
  Receipt Date: 20090924
  Transmission Date: 20100115
  Serious: Yes (Other)
  Sender: FDA-Public Use
  Company Number: None

PATIENT
  Sex: Female
  Weight: 54.4316 kg

DRUGS (1)
  1. RESTASIS [Suspect]
     Indication: DRY EYE
     Dosage: 1 DROP IN EACH EYE TWICE A DAY
     Route: 047
     Dates: start: 20090515, end: 20090806

REACTIONS (10)
  - BURNING SENSATION [None]
  - EMOTIONAL DISTRESS [None]
  - ERYTHEMA [None]
  - MUSCULAR WEAKNESS [None]
  - PAIN [None]
  - PRURITUS [None]
  - RASH [None]
  - SENSATION OF FOREIGN BODY [None]
  - SKIN DISORDER [None]
  - VEIN DISORDER [None]
